FAERS Safety Report 9296413 (Version 1)
Quarter: 2013Q2

REPORT INFORMATION
  Report Type: Spontaneous
  Country: NO (occurrence: NO)
  Receive Date: 20130517
  Receipt Date: 20130517
  Transmission Date: 20140414
  Serious: Yes (Disabling)
  Sender: FDA-Public Use
  Company Number: NO-UCBSA-086037

PATIENT
  Age: 74 Year
  Sex: Female

DRUGS (1)
  1. CIMZIA [Suspect]
     Indication: ARTHRITIS
     Dates: start: 20130102, end: 20130318

REACTIONS (3)
  - Retinal vein occlusion [Recovered/Resolved with Sequelae]
  - Respiratory tract infection [Recovered/Resolved]
  - Hypertension [Recovered/Resolved]
